FAERS Safety Report 9298429 (Version 2)
Quarter: 2013Q2

REPORT INFORMATION
  Report Type: Spontaneous
  Country: US (occurrence: US)
  Receive Date: 20130520
  Receipt Date: 20130613
  Transmission Date: 20140414
  Serious: Yes (Other)
  Sender: FDA-Public Use
  Company Number: US-PFIZER INC-2013151769

PATIENT
  Age: 57 Year
  Sex: Female
  Weight: 99.3 kg

DRUGS (3)
  1. LEVOXYL [Suspect]
     Indication: THYROID HORMONE REPLACEMENT THERAPY
     Dosage: UNK
     Route: 048
     Dates: start: 1993, end: 201304
  2. LEVOXYL [Suspect]
     Indication: HYPOTHYROIDISM
     Dosage: 125 UG, CYCLIC (1X/DAY AFTER EVERY TWO WEEKS)
     Route: 048
     Dates: start: 201304, end: 201305
  3. LEVOXYL [Suspect]
     Dosage: 75 UG, UNK
     Route: 048

REACTIONS (4)
  - Oesophageal carcinoma [Unknown]
  - Gastric cancer [Unknown]
  - Pain [Unknown]
  - Thyroid function test abnormal [Unknown]
